FAERS Safety Report 8790480 (Version 1)
Quarter: 2012Q4

REPORT INFORMATION
  Report Type: Spontaneous
  Country: US (occurrence: None)
  Receive Date: 20120911
  Receipt Date: 20120911
  Transmission Date: 20130627
  Serious: No
  Sender: FDA-Public Use
  Company Number: None

PATIENT
  Age: 64 Year
  Sex: Female
  Weight: 65.77 kg

DRUGS (1)
  1. ENOXAPARIN SODIUM [Suspect]
     Indication: PROPHYLAXIS
     Dosage: inject 1 syringeful twice daily sq
     Route: 058
     Dates: start: 20120810, end: 20120813

REACTIONS (5)
  - Product substitution issue [None]
  - Haematoma [None]
  - Contusion [None]
  - Pain [None]
  - Swelling [None]
